FAERS Safety Report 14758570 (Version 1)
Quarter: 2018Q2

REPORT INFORMATION
  Report Type: Other
  Country: None (occurrence: US)
  Receive Date: 20180413
  Receipt Date: 20180413
  Transmission Date: 20180711
  Serious: Yes (Life-Threatening, Hospitalization, Other)
  Sender: FDA-Public Use
  Company Number: US-SPEAR PHARMACEUTICALS-2045742

PATIENT
  Age: 67 Year
  Sex: Male

DRUGS (1)
  1. FLUOROURACIL CREAM, USP 0.5% [Suspect]
     Active Substance: FLUOROURACIL
     Indication: ACTINIC KERATOSIS
     Route: 061
     Dates: start: 20171123, end: 20171130

REACTIONS (5)
  - Decreased appetite [None]
  - Mouth ulceration [None]
  - Weight decreased [None]
  - Dehydration [None]
  - Mucosal inflammation [None]
